FAERS Safety Report 4652581-0 (Version None)
Quarter: 2005Q2

REPORT INFORMATION
  Report Type: 
  Country: None (occurrence: None)
  Receive Date: 20050504
  Receipt Date: 20050428
  Transmission Date: 20051028
  Serious: Yes (Hospitalization, Other)
  Sender: FDA-Public Use
  Company Number: DE-JNJFOC-20050402891

PATIENT
  Sex: Male
  Weight: 83 kg

DRUGS (2)
  1. DURAGESIC-100 [Suspect]
     Route: 062
  2. TRAMAGIT [Concomitant]
     Dosage: 2X1/2 TABLET.
     Route: 049

REACTIONS (3)
  - AGGRESSION [None]
  - AGITATION [None]
  - HALLUCINATION [None]
